FAERS Safety Report 14385744 (Version 1)
Quarter: 2018Q1

REPORT INFORMATION
  Report Type: Spontaneous
  Country: US (occurrence: US)
  Receive Date: 20180115
  Receipt Date: 20180115
  Transmission Date: 20180509
  Serious: Yes (Other)
  Sender: FDA-Public Use
  Company Number: US-SA-2017SA038558

PATIENT
  Age: 47 Year
  Sex: Female
  Weight: 148.77 kg

DRUGS (7)
  1. ATENOLOL. [Concomitant]
     Active Substance: ATENOLOL
     Route: 048
  2. TAXOTERE [Suspect]
     Active Substance: DOCETAXEL
     Indication: BREAST CANCER
     Route: 051
     Dates: start: 20120221, end: 20120221
  3. METFORMIN [Concomitant]
     Active Substance: METFORMIN HYDROCHLORIDE
     Route: 048
     Dates: start: 2005
  4. HERCEPTIN [Concomitant]
     Active Substance: TRASTUZUMAB
  5. CARBOPLATIN. [Concomitant]
     Active Substance: CARBOPLATIN
  6. MELOXICAM. [Concomitant]
     Active Substance: MELOXICAM
     Route: 048
  7. TAXOTERE [Suspect]
     Active Substance: DOCETAXEL
     Indication: BREAST CANCER
     Route: 051
     Dates: start: 20120612, end: 20120612

REACTIONS (6)
  - Emotional distress [Unknown]
  - Alopecia [Not Recovered/Not Resolved]
  - Impaired quality of life [Unknown]
  - Pain [Unknown]
  - Anxiety [Unknown]
  - Psychological trauma [Unknown]

NARRATIVE: CASE EVENT DATE: 201203
